FAERS Safety Report 10243299 (Version 1)
Quarter: 2014Q2

REPORT INFORMATION
  Report Type: Spontaneous
  Country: US (occurrence: US)
  Receive Date: 20140618
  Receipt Date: 20140618
  Transmission Date: 20141212
  Serious: Yes (Other)
  Sender: FDA-Public Use
  Company Number: PHEH2014US011715

PATIENT
  Age: 71 Year
  Sex: Female

DRUGS (8)
  1. RECLAST [Suspect]
     Dosage: UNK UKN, UNK
     Route: 042
  2. RECLAST [Suspect]
     Dosage: UNK
     Dates: start: 201301
  3. NAPROXEN [Suspect]
     Dosage: 500 MG, UNK
  4. IBUPROFEN [Suspect]
     Dosage: 800 MG, UNK
  5. CALCIUM [Concomitant]
     Dosage: UNK UKN, UNK
  6. VITAMIN D [Concomitant]
     Dosage: UNK UKN, UNK
  7. FOLIC ACID [Concomitant]
     Dosage: UNK UKN, UNK
  8. MULTI-VIT [Concomitant]
     Dosage: UNK UKN, UNK

REACTIONS (9)
  - Paralysis [Unknown]
  - Mobility decreased [Unknown]
  - Depressed mood [Unknown]
  - Inflammation [Unknown]
  - Musculoskeletal stiffness [Unknown]
  - Pain in extremity [Unknown]
  - Pain [Unknown]
  - Arthralgia [Unknown]
  - Musculoskeletal pain [Unknown]
